FAERS Safety Report 4700037-9 (Version None)
Quarter: 2005Q2

REPORT INFORMATION
  Report Type: 
  Country: None (occurrence: None)
  Receive Date: 20050623
  Receipt Date: 20050609
  Transmission Date: 20051028
  Serious: Yes (Death)
  Sender: FDA-Public Use
  Company Number: 200411742BCC

PATIENT
  Sex: Male

DRUGS (10)
  1. ALEVE [Suspect]
     Indication: DEMENTIA ALZHEIMER'S TYPE
     Dosage: BID, ORAL
     Route: 048
     Dates: start: 20031107
  2. ASPIRIN [Concomitant]
     Indication: PROPHYLAXIS
  3. LOVASTATIN [Concomitant]
  4. FLUNISOLIDE NASAL SPRAY [Concomitant]
  5. ALBUTEROL [Concomitant]
  6. SEREVENT [Concomitant]
  7. QVAR 40 [Concomitant]
  8. ASCORBIC ACID [Concomitant]
  9. VITAMIN E [Concomitant]
  10. MULTI-VITAMIN [Concomitant]

REACTIONS (1)
  - MYOCARDIAL INFARCTION [None]
